FAERS Safety Report 6701099-X (Version None)
Quarter: 2010Q2

REPORT INFORMATION
  Report Type: 
  Country: None (occurrence: None)
  Receive Date: 20100428
  Receipt Date: 20100416
  Transmission Date: 20101027
  Serious: Yes (Life-Threatening)
  Sender: FDA-Public Use
  Company Number: SV-ELI_LILLY_AND_COMPANY-SV201004005419

PATIENT
  Age: 56 Year
  Sex: Male

DRUGS (2)
  1. OLANZAPINE [Suspect]
     Indication: DELIRIUM
     Route: 030
     Dates: start: 20100405, end: 20100409
  2. DIAZEPAM [Concomitant]
     Dosage: 10 MG, EVERY 6 HRS
     Route: 042
     Dates: start: 20100405, end: 20100407

REACTIONS (4)
  - EXTRADURAL HAEMATOMA [None]
  - OFF LABEL USE [None]
  - OVERDOSE [None]
  - SEDATION [None]
